FAERS Safety Report 9224513 (Version 1)
Quarter: 2012Q4

REPORT INFORMATION
  Report Type: Spontaneous
  Country: US (occurrence: None)
  Receive Date: 20120917
  Receipt Date: 20120917
  Transmission Date: 20130627
  Serious: No
  Sender: FDA-Public Use
  Company Number: HRA-CDB20120238

PATIENT
  Sex: Female

DRUGS (1)
  1. ELLA [Suspect]
     Dates: start: 20120725

REACTIONS (2)
  - Vomiting [None]
  - Headache [None]
